FAERS Safety Report 10441237 (Version 2)
Quarter: 2014Q3

REPORT INFORMATION
  Report Type: Report from Study
  Country: MY (occurrence: MY)
  Receive Date: 20140909
  Receipt Date: 20140909
  Transmission Date: 20150326
  Serious: Yes (Hospitalization)
  Sender: FDA-Public Use
  Company Number: MY-EISAI INC-E2007-01869-CLI-MY

PATIENT
  Age: 17 Year
  Sex: Female
  Weight: 52.4 kg

DRUGS (7)
  1. E2007 (PERAMPANEL) [Suspect]
     Active Substance: PERAMPANEL
     Indication: PARTIAL SEIZURES
     Dosage: DOUBLE-BLIND CORE STUDY
     Route: 048
     Dates: start: 201403, end: 20140817
  2. E2007 (PERAMPANEL) [Suspect]
     Active Substance: PERAMPANEL
     Dosage: OVERDOSE: TOOK 36 TABLETS (6-DAY SUPPLY)
     Route: 048
     Dates: start: 20140829, end: 20140829
  3. FOLIC ACID. [Concomitant]
     Active Substance: FOLIC ACID
  4. SIMVASTATIN. [Concomitant]
     Active Substance: SIMVASTATIN
  5. E2007 (PERAMPANEL) [Suspect]
     Active Substance: PERAMPANEL
     Dosage: CONVERSION
     Route: 048
     Dates: start: 20140818, end: 20140828
  6. TOPAMAX [Concomitant]
     Active Substance: TOPIRAMATE
  7. FERROUS SULFATE [Concomitant]
     Active Substance: FERROUS SULFATE\FERROUS SULFATE, DRIED

REACTIONS (2)
  - Intentional overdose [Recovered/Resolved]
  - Altered state of consciousness [Recovered/Resolved]

NARRATIVE: CASE EVENT DATE: 20140829
